FAERS Safety Report 9050328 (Version 1)
Quarter: 2013Q1

REPORT INFORMATION
  Report Type: Spontaneous
  Country: NL (occurrence: NL)
  Receive Date: 20130205
  Receipt Date: 20130205
  Transmission Date: 20140127
  Serious: Yes (Other)
  Sender: FDA-Public Use
  Company Number: PHHY2013NL010305

PATIENT
  Age: 69 Year
  Sex: Female

DRUGS (2)
  1. CO-DIOVAN [Suspect]
  2. DIOVAN [Suspect]

REACTIONS (4)
  - Myocardial infarction [Unknown]
  - Cardiac disorder [Unknown]
  - Heart valve incompetence [Unknown]
  - Pulmonary oedema [Unknown]
